FAERS Safety Report 14210671 (Version 1)
Quarter: 2017Q4

REPORT INFORMATION
  Report Type: Report from Study
  Country: DE (occurrence: DE)
  Receive Date: 20171121
  Receipt Date: 20171121
  Transmission Date: 20180321
  Serious: Yes (Other)
  Sender: FDA-Public Use
  Company Number: DE-ROCHE-2028762

PATIENT
  Age: 72 Year
  Sex: Male

DRUGS (1)
  1. BEVACIZUMAB. [Suspect]
     Active Substance: BEVACIZUMAB
     Indication: COLORECTAL CANCER METASTATIC
     Route: 042
     Dates: start: 20130609, end: 20150224

REACTIONS (9)
  - Hypokalaemia [Recovered/Resolved]
  - Blood thyroid stimulating hormone increased [Recovered/Resolved]
  - Weight decreased [Not Recovered/Not Resolved]
  - Blood sodium decreased [Recovered/Resolved]
  - Hyperglycaemia [Not Recovered/Not Resolved]
  - Protein total decreased [Recovered/Resolved]
  - Leukopenia [Recovered/Resolved]
  - Pancreatic enzymes decreased [Recovered/Resolved]
  - C-reactive protein increased [Recovered/Resolved]

NARRATIVE: CASE EVENT DATE: 20130621
